FAERS Safety Report 9328385 (Version 1)
Quarter: 2013Q2

REPORT INFORMATION
  Report Type: Spontaneous
  Country: US (occurrence: US)
  Receive Date: 20130604
  Receipt Date: 20130604
  Transmission Date: 20140414
  Serious: No
  Sender: FDA-Public Use
  Company Number: US-SANOFI-AVENTIS-2012SA068321

PATIENT
  Age: 51 Year
  Sex: Female

DRUGS (4)
  1. LANTUS SOLOSTAR [Suspect]
     Indication: TYPE 2 DIABETES MELLITUS
     Dosage: THERAPY START DATE: 7 YEARS AGO. DOSE:32 UNIT(S)
     Route: 058
     Dates: start: 2005
  2. SOLOSTAR [Suspect]
     Indication: TYPE 2 DIABETES MELLITUS
     Dates: start: 2005
  3. APIDRA SOLOSTAR [Suspect]
     Indication: TYPE 2 DIABETES MELLITUS
     Dosage: THERAPY START DATE : 8 YEARS AGO . DOSE:22 UNIT(S)
     Route: 058
     Dates: start: 2004, end: 20120909
  4. SOLOSTAR [Suspect]
     Indication: TYPE 2 DIABETES MELLITUS
     Dates: start: 2004

REACTIONS (5)
  - Arthropathy [Unknown]
  - Blood glucose decreased [Recovering/Resolving]
  - Feeling abnormal [Recovering/Resolving]
  - Vomiting [Recovering/Resolving]
  - Dizziness [Recovering/Resolving]
